FAERS Safety Report 21301627 (Version 1)
Quarter: 2022Q3

REPORT INFORMATION
  Report Type: Spontaneous
  Country: US (occurrence: US)
  Receive Date: 20220907
  Receipt Date: 20220907
  Transmission Date: 20221026
  Serious: No
  Sender: FDA-Public Use
  Company Number: US-BRISTOL-MYERS SQUIBB COMPANY-2022-102121

PATIENT
  Age: 85 Year
  Sex: Female

DRUGS (2)
  1. POMALYST [Suspect]
     Active Substance: POMALIDOMIDE
     Indication: Plasma cell myeloma
     Dosage: DOSE : UNAVAILABLE;     FREQ : 1 CAPSULE PER DAY FOR 21 DAYS THEN 7 DAYS OFF
     Route: 048
     Dates: start: 202010
  2. DARZALEX [Concomitant]
     Active Substance: DARATUMUMAB
     Indication: Product used for unknown indication
     Dosage: (DARZALEX-NOV2020 STARTED) IV CHEMO.
     Route: 042
     Dates: start: 202011

REACTIONS (4)
  - Tremor [Unknown]
  - Lethargy [Unknown]
  - Muscle spasms [Unknown]
  - Dysgraphia [Unknown]
